FAERS Safety Report 4588610-2 (Version None)
Quarter: 2005Q1

REPORT INFORMATION
  Report Type: 
  Country: None (occurrence: None)
  Receive Date: 20050216
  Receipt Date: 20050216
  Transmission Date: 20050727
  Serious: Yes (Other)
  Sender: FDA-Public Use
  Company Number: None

PATIENT
  Sex: Female

DRUGS (1)
  1. ORAGEL [Suspect]

REACTIONS (8)
  - DRUG HYPERSENSITIVITY [None]
  - GASTROINTESTINAL DISORDER [None]
  - GINGIVAL BLEEDING [None]
  - MOUTH HAEMORRHAGE [None]
  - MOUTH ULCERATION [None]
  - MUSCULOSKELETAL DISORDER [None]
  - ORAL INTAKE REDUCED [None]
  - PAIN IN EXTREMITY [None]
